FAERS Safety Report 22958856 (Version 3)
Quarter: 2024Q2

REPORT INFORMATION
  Report Type: Spontaneous
  Country: US (occurrence: US)
  Receive Date: 20230919
  Receipt Date: 20240528
  Transmission Date: 20240716
  Serious: No
  Sender: FDA-Public Use
  Company Number: US-SA-SAC20230914000123

PATIENT
  Age: 15 Year
  Sex: Male

DRUGS (3)
  1. ALTUVIIIO [Suspect]
     Active Substance: EFANESOCTOCOG ALFA
     Indication: Haemorrhage prophylaxis
     Dosage: 4000 IU (+/-10%), QW FOR SPORTS PROPHYLAXIS
     Route: 042
  2. ALTUVIIIO [Suspect]
     Active Substance: EFANESOCTOCOG ALFA
     Dosage: 4000 IU (+/-10%), EVERY 48 HOURS AS NEEDED FOR BREAKTHROUGH BLEEDING
     Route: 042
  3. ALTUVIIIO [Suspect]
     Active Substance: EFANESOCTOCOG ALFA
     Dosage: 3620 U, PRN
     Route: 042

REACTIONS (2)
  - Joint injury [Unknown]
  - Hand fracture [Unknown]

NARRATIVE: CASE EVENT DATE: 20230905
